FAERS Safety Report 6531663-2 (Version None)
Quarter: 2010Q1

REPORT INFORMATION
  Report Type: 
  Country: None (occurrence: None)
  Receive Date: 20100108
  Receipt Date: 20091230
  Transmission Date: 20100710
  Serious: Yes (Hospitalization)
  Sender: FDA-Public Use
  Company Number: US-BRISTOL-MYERS SQUIBB COMPANY-14843593

PATIENT
  Age: 50 Year
  Sex: Female

DRUGS (11)
  1. ONGLYZA [Suspect]
     Indication: TYPE 2 DIABETES MELLITUS
     Route: 048
     Dates: start: 20090902, end: 20091001
  2. TRICOR [Suspect]
     Dosage: 1 DOSAGE FORM=140 UNITS NOT SPECIFIED.
     Dates: start: 20010101
  3. LIPITOR [Suspect]
     Dates: start: 20010101
  4. TOPAMAX [Concomitant]
     Dosage: 1DOSAGE FORM=100 UNITS NOT SPECIFIED.
  5. INSULIN [Concomitant]
  6. NARCOTIC NOS [Concomitant]
  7. FISH OIL [Concomitant]
  8. LANTUS [Concomitant]
     Dosage: 1DOSAGE FORM=10UNITS.
     Dates: start: 20090513
  9. SEROQUEL [Concomitant]
  10. NEXIUM [Concomitant]
  11. FIORICET [Concomitant]

REACTIONS (1)
  - PANCREATITIS [None]
